FAERS Safety Report 18879592 (Version 1)
Quarter: 2021Q1

REPORT INFORMATION
  Report Type: Spontaneous
  Country: FR (occurrence: FR)
  Receive Date: 20210211
  Receipt Date: 20210211
  Transmission Date: 20210420
  Serious: Yes (Hospitalization)
  Sender: FDA-Public Use
  Company Number: NVSC2021FR027771

PATIENT
  Age: 46 Year
  Sex: Male

DRUGS (2)
  1. PARACETAMOL [Suspect]
     Active Substance: ACETAMINOPHEN
     Indication: PAIN
     Dosage: 3 G
     Route: 048
     Dates: start: 20210114, end: 20210121
  2. METEOSPASMYL [ALVERINE CITRATE/DL?METHIONINE] [Suspect]
     Active Substance: ALVERINE CITRATE\RACEMETHIONINE
     Indication: GASTROINTESTINAL MOTILITY DISORDER
     Dosage: 3 DF
     Route: 065
     Dates: start: 20201209, end: 20210122

REACTIONS (1)
  - Hepatitis [Recovering/Resolving]

NARRATIVE: CASE EVENT DATE: 20210122
